FAERS Safety Report 17089528 (Version 2)
Quarter: 2019Q4

REPORT INFORMATION
  Report Type: Spontaneous
  Country: DE (occurrence: DE)
  Receive Date: 20191128
  Receipt Date: 20191203
  Transmission Date: 20200122
  Serious: Yes (Hospitalization)
  Sender: FDA-Public Use
  Company Number: DE-MYLANLABS-2019M1115445

PATIENT
  Age: 76 Year
  Sex: Male
  Weight: 75 kg

DRUGS (8)
  1. TAMSULOSIN [Concomitant]
     Active Substance: TAMSULOSIN
     Dosage: 0.4 MILLIGRAM, QD (0-0-1)
     Route: 048
  2. TORASEMIDE [Suspect]
     Active Substance: TORSEMIDE
     Indication: PRODUCT USED FOR UNKNOWN INDICATION
     Dosage: 40 MILLIGRAM, QD (1-0-0)
     Route: 048
  3. PANTOPRAZOL                        /01263201/ [Concomitant]
     Active Substance: PANTOPRAZOLE
     Dosage: 40 MILLIGRAM, QD (1-0-0)
     Route: 048
  4. SIMVASTATIN. [Concomitant]
     Active Substance: SIMVASTATIN
     Dosage: 10 MILLIGRAM, QD (0-0-1)
     Route: 048
  5. ACETYLSALICYLIC ACID [Concomitant]
     Active Substance: ASPIRIN
     Dosage: 100 MILLIGRAM, QD (1-0-0)
     Route: 048
  6. AMIODARON                          /00133101/ [Concomitant]
     Active Substance: AMIODARONE
     Dosage: 200 MILLIGRAM
     Route: 048
  7. METOPROLOL SUCCINAT ACINO [Concomitant]
     Dosage: 95 MILLIGRAM, BID (1-0-1)
     Route: 048
  8. KALIUMCHLORID [Concomitant]
     Active Substance: POTASSIUM CHLORIDE
     Dosage: UNK, TID (1-0-0), 8 MMOL/L
     Route: 048

REACTIONS (5)
  - Hypokalaemia [Unknown]
  - Cough [Unknown]
  - Acute kidney injury [Unknown]
  - Dehydration [Unknown]
  - Pyrexia [Unknown]
